FAERS Safety Report 6207250-2 (Version None)
Quarter: 2009Q2

REPORT INFORMATION
  Report Type: 
  Country: None (occurrence: None)
  Receive Date: 20090528
  Receipt Date: 20090122
  Transmission Date: 20091009
  Serious: Yes (Hospitalization, Other)
  Sender: FDA-Public Use
  Company Number: US-PFIZER INC-2009167252

PATIENT
  Sex: Male

DRUGS (4)
  1. SOLU-MEDROL [Suspect]
     Indication: MULTIPLE SCLEROSIS
     Route: 042
  2. REBIF [Suspect]
     Indication: MULTIPLE SCLEROSIS
     Dosage: 44 UG, 3 IN 1 WEEKS
     Route: 058
     Dates: start: 20021023
  3. ZANAFLEX [Concomitant]
     Indication: MUSCLE SPASMS
     Dosage: UNK
  4. LEXAPRO [Concomitant]
     Indication: DEPRESSION

REACTIONS (3)
  - MULTIPLE SCLEROSIS RELAPSE [None]
  - NAUSEA [None]
  - PSYCHOTIC DISORDER [None]
